FAERS Safety Report 10027611 (Version 3)
Quarter: 2014Q2

REPORT INFORMATION
  Report Type: Spontaneous
  Country: US (occurrence: US)
  Receive Date: 20140321
  Receipt Date: 20140421
  Transmission Date: 20141212
  Serious: No
  Sender: FDA-Public Use
  Company Number: US-PFIZER INC-2014079608

PATIENT
  Age: 53 Year
  Sex: Male

DRUGS (2)
  1. LIPITOR [Suspect]
     Dosage: UNK
  2. ASA [Suspect]
     Dosage: UNK

REACTIONS (2)
  - Abdominal discomfort [Unknown]
  - Fatigue [Unknown]
